FAERS Safety Report 19514735 (Version 2)
Quarter: 2021Q3

REPORT INFORMATION
  Report Type: Spontaneous
  Country: US (occurrence: US)
  Receive Date: 20210709
  Receipt Date: 20210803
  Transmission Date: 20211014
  Serious: Yes (Hospitalization, Other)
  Sender: FDA-Public Use
  Company Number: US-009507513-2107USA001533

PATIENT
  Age: 76 Year
  Sex: Female

DRUGS (4)
  1. RIVAROXABAN [Concomitant]
     Active Substance: RIVAROXABAN
     Indication: PULMONARY EMBOLISM
     Dosage: UNK
  2. KEYTRUDA [Suspect]
     Active Substance: PEMBROLIZUMAB
     Indication: METASTATIC MALIGNANT MELANOMA
  3. KEYTRUDA [Suspect]
     Active Substance: PEMBROLIZUMAB
     Indication: MALIGNANT MELANOMA STAGE III
     Dosage: UNK
  4. KEYTRUDA [Suspect]
     Active Substance: PEMBROLIZUMAB
     Indication: MALIGNANT MELANOMA

REACTIONS (12)
  - Respiratory failure [Unknown]
  - Atrioventricular block complete [Unknown]
  - Ophthalmoplegia [Unknown]
  - Lymphocytic infiltration [Unknown]
  - Pericarditis [Unknown]
  - Immune-mediated dermatitis [Unknown]
  - Immune-mediated myositis [Unknown]
  - Immune-mediated hepatitis [Unknown]
  - Vasculitis necrotising [Unknown]
  - Myasthenic syndrome [Not Recovered/Not Resolved]
  - Peripheral sensory neuropathy [Unknown]
  - Immune-mediated myocarditis [Unknown]
